FAERS Safety Report 8622816-8 (Version None)
Quarter: 2012Q3

REPORT INFORMATION
  Report Type: 
  Country: None (occurrence: None)
  Receive Date: 20120827
  Receipt Date: 20120827
  Transmission Date: 20120928
  Serious: Yes (Other)
  Sender: FDA-Public Use
  Company Number: SG-BAYER-2012-088157

PATIENT
  Age: 43 Year
  Sex: Male

DRUGS (1)
  1. MOXIFLOXACIN [Suspect]
     Route: 048

REACTIONS (4)
  - UNEVALUABLE EVENT [None]
  - RASH [None]
  - PALPITATIONS [None]
  - ANGIOEDEMA [None]
